FAERS Safety Report 11450130 (Version 1)
Quarter: 2015Q3

REPORT INFORMATION
  Report Type: Spontaneous
  Country: US (occurrence: US)
  Receive Date: 20150903
  Receipt Date: 20150903
  Transmission Date: 20151125
  Serious: Yes (Other)
  Sender: FDA-Public Use
  Company Number: US-ROCHE-799327

PATIENT
  Sex: Male

DRUGS (3)
  1. RIBAVIRIN. [Suspect]
     Active Substance: RIBAVIRIN
     Indication: CHRONIC HEPATITIS C
     Dosage: REDUCED DOSE
     Route: 048
     Dates: start: 20110819, end: 20120210
  2. INCIVEK [Concomitant]
     Active Substance: TELAPREVIR
     Indication: PRODUCT USED FOR UNKNOWN INDICATION
     Route: 065
  3. PEGASYS [Suspect]
     Active Substance: PEGINTERFERON ALFA-2A
     Indication: CHRONIC HEPATITIS C
     Route: 058
     Dates: start: 20110819, end: 20120210

REACTIONS (17)
  - Fatigue [Unknown]
  - Asthenia [Unknown]
  - Nausea [Unknown]
  - Conjunctivitis [Unknown]
  - Dyspnoea [Unknown]
  - Chapped lips [Unknown]
  - Erythema [Unknown]
  - Rash [Unknown]
  - Eye swelling [Unknown]
  - Lip haemorrhage [Unknown]
  - Epistaxis [Unknown]
  - Toothache [Unknown]
  - Anaemia [Unknown]
  - Influenza like illness [Unknown]
  - Ocular hyperaemia [Unknown]
  - Eye pain [Unknown]
  - Dry skin [Unknown]
